FAERS Safety Report 6017375-2 (Version None)
Quarter: 2008Q4

REPORT INFORMATION
  Report Type: 
  Country: None (occurrence: None)
  Receive Date: 20081223
  Receipt Date: 20081209
  Transmission Date: 20090506
  Serious: Yes (Other)
  Sender: FDA-Public Use
  Company Number: PHHY2008FR31066

PATIENT
  Sex: Female

DRUGS (5)
  1. ZOMETA [Suspect]
     Indication: MULTIPLE MYELOMA
     Route: 042
  2. ZOMETA [Suspect]
     Indication: METASTASES TO BONE
  3. REVLIMID [Suspect]
     Indication: MULTIPLE MYELOMA
  4. ALDACTAZINE [Suspect]
  5. FOSAVANCE [Concomitant]

REACTIONS (4)
  - BLOOD CREATININE INCREASED [None]
  - DIALYSIS [None]
  - PROTEIN TOTAL INCREASED [None]
  - RENAL TUBULAR NECROSIS [None]
